FAERS Safety Report 19233998 (Version 1)
Quarter: 2021Q2

REPORT INFORMATION
  Report Type: Spontaneous
  Country: US (occurrence: US)
  Receive Date: 20210508
  Receipt Date: 20210508
  Transmission Date: 20210717
  Serious: No
  Sender: FDA-Public Use
  Company Number: US-ORGANON-2102USA006957

PATIENT
  Age: 28 Year
  Sex: Female
  Weight: 71.21 kg

DRUGS (2)
  1. FLUOXETINE [Concomitant]
     Active Substance: FLUOXETINE HYDROCHLORIDE
     Dosage: UNK
  2. NEXPLANON [Suspect]
     Active Substance: ETONOGESTREL
     Indication: CONTRACEPTION
     Dosage: 1 IMPLANT FOR 4 YEARS; LEFT ARM
     Route: 059
     Dates: start: 20210210

REACTIONS (1)
  - Implant site rash [Recovered/Resolved]

NARRATIVE: CASE EVENT DATE: 20210217
